FAERS Safety Report 6131395-9 (Version None)
Quarter: 2009Q1

REPORT INFORMATION
  Report Type: 
  Country: None (occurrence: None)
  Receive Date: 20090325
  Receipt Date: 20080512
  Transmission Date: 20090719
  Serious: Yes (Hospitalization)
  Sender: FDA-Public Use
  Company Number: US-BRISTOL-MYERS SQUIBB COMPANY-14189955

PATIENT

DRUGS (1)
  1. ERBITUX [Suspect]
     Dosage: PATIENT WAS IN 3RD WEEK.
     Dates: start: 20080418, end: 20080418

REACTIONS (1)
  - ADVERSE EVENT [None]
